FAERS Safety Report 9104312 (Version 2)
Quarter: 2013Q2

REPORT INFORMATION
  Report Type: Spontaneous
  Country: AU (occurrence: AU)
  Receive Date: 20130219
  Receipt Date: 20130418
  Transmission Date: 20140414
  Serious: Yes (Other)
  Sender: FDA-Public Use
  Company Number: AU-ROCHE-1192123

PATIENT
  Age: 41 Year
  Sex: Female

DRUGS (6)
  1. CELLCEPT [Suspect]
     Indication: RENAL TRANSPLANT
     Route: 065
     Dates: start: 20061202
  2. PREDNISONE [Suspect]
     Indication: RENAL TRANSPLANT
     Route: 065
     Dates: start: 20070817
  3. BELATACEPT [Suspect]
     Indication: RENAL TRANSPLANT
     Route: 042
     Dates: start: 20061206
  4. CALTRATE [Concomitant]
     Route: 065
     Dates: start: 20061213
  5. CALCITROL [Concomitant]
     Route: 065
     Dates: start: 20061213
  6. TRITACE [Concomitant]
     Route: 065
     Dates: start: 20080515

REACTIONS (1)
  - Squamous cell carcinoma [Recovered/Resolved]
